FAERS Safety Report 17443773 (Version 4)
Quarter: 2021Q3

REPORT INFORMATION
  Report Type: Report from Study
  Country: None (occurrence: CO)
  Receive Date: 20200221
  Receipt Date: 20210823
  Transmission Date: 20211014
  Serious: Yes (Disabling, Other)
  Sender: FDA-Public Use
  Company Number: CO-ABBVIE-20K-036-3287725-00

PATIENT
  Sex: Female
  Weight: 59 kg

DRUGS (1)
  1. HUMIRA [Suspect]
     Active Substance: ADALIMUMAB
     Indication: HIDRADENITIS
     Route: 058
     Dates: start: 20180730

REACTIONS (7)
  - Fistula [Not Recovered/Not Resolved]
  - Postoperative wound infection [Recovering/Resolving]
  - Purulent discharge [Not Recovered/Not Resolved]
  - Procedural failure [Unknown]
  - Adverse drug reaction [Unknown]
  - Fistula [Recovered/Resolved]
  - Fistula [Not Recovered/Not Resolved]

NARRATIVE: CASE EVENT DATE: 2019
